FAERS Safety Report 6310784-3 (Version None)
Quarter: 2009Q3

REPORT INFORMATION
  Report Type: 
  Country: None (occurrence: None)
  Receive Date: 20090812
  Receipt Date: 20090804
  Transmission Date: 20100115
  Serious: Yes (Hospitalization)
  Sender: FDA-Public Use
  Company Number: 342670

PATIENT
  Age: 18 Year
  Sex: Male
  Weight: 100 kg

DRUGS (7)
  1. METHOTREXATE [Suspect]
     Indication: ACUTE LYMPHOCYTIC LEUKAEMIA
     Dosage: 250 MG/M2, INTRAVENOUS; 580 MG
     Route: 042
     Dates: start: 20090709
  2. METHOTREXATE [Suspect]
     Indication: ACUTE LYMPHOCYTIC LEUKAEMIA
     Dosage: 250 MG/M2, INTRAVENOUS; 580 MG
     Route: 042
     Dates: start: 20090720
  3. VINCRISTINE [Concomitant]
  4. STERILE PENTAMIDINE ISETHIONATE, 300 MG, FLIPTOP VIAL (PENTAMIDINE) [Concomitant]
  5. ELAVIL [Concomitant]
  6. ZOFRAN [Concomitant]
  7. COMPAZINE/00013302 [Concomitant]

REACTIONS (10)
  - ALANINE AMINOTRANSFERASE INCREASED [None]
  - ASPARTATE AMINOTRANSFERASE INCREASED [None]
  - BLISTER [None]
  - MALAISE [None]
  - MENTAL STATUS CHANGES [None]
  - MUCOSAL INFLAMMATION [None]
  - OROPHARYNGEAL PAIN [None]
  - RENAL FAILURE [None]
  - SKIN EXFOLIATION [None]
  - VOMITING [None]
